FAERS Safety Report 20737176 (Version 2)
Quarter: 2022Q2

REPORT INFORMATION
  Report Type: Spontaneous
  Country: US (occurrence: US)
  Receive Date: 20220421
  Receipt Date: 20220502
  Transmission Date: 20220721
  Serious: No
  Sender: FDA-Public Use
  Company Number: US-BIOMARINAP-US-2022-142759

PATIENT
  Age: 5 Year
  Sex: Female
  Weight: 15.1 kg

DRUGS (2)
  1. NAGLAZYME [Suspect]
     Active Substance: GALSULFASE
     Indication: Mucopolysaccharidosis VI
     Dosage: 15 MILLIGRAM, QW
     Route: 042
     Dates: start: 20220211
  2. NAGLAZYME [Suspect]
     Active Substance: GALSULFASE
     Dosage: UNK
     Route: 042

REACTIONS (6)
  - Application site hypersensitivity [Unknown]
  - Infusion site pain [Not Recovered/Not Resolved]
  - Neck pain [Not Recovered/Not Resolved]
  - Pain in extremity [Unknown]
  - Muscle spasms [Not Recovered/Not Resolved]
  - Sleep disorder due to a general medical condition [Not Recovered/Not Resolved]
